FAERS Safety Report 13733590 (Version 2)
Quarter: 2017Q4

REPORT INFORMATION
  Report Type: Report from Study
  Country: US (occurrence: US)
  Receive Date: 20170707
  Receipt Date: 20171003
  Transmission Date: 20180320
  Serious: No
  Sender: FDA-Public Use
  Company Number: GXBR2017US001861

PATIENT
  Sex: Female
  Weight: 34.8 kg

DRUGS (1)
  1. OMNITROPE [Suspect]
     Active Substance: SOMATROPIN
     Indication: HYPOPITUITARISM
     Dosage: 1.5 MG, QD
     Route: 058
     Dates: start: 20170526

REACTIONS (1)
  - Injection site pain [Not Recovered/Not Resolved]
